FAERS Safety Report 7297296-8 (Version None)
Quarter: 2011Q1

REPORT INFORMATION
  Report Type: 
  Country: None (occurrence: None)
  Receive Date: 20110216
  Receipt Date: 20110211
  Transmission Date: 20110831
  Serious: Yes (Other)
  Sender: FDA-Public Use
  Company Number: CHPA2011US02696

PATIENT
  Age: 40 Year
  Sex: Female
  Weight: 72.562 kg

DRUGS (2)
  1. THERAFLU FLU AND SORE THROAT [Suspect]
     Indication: INFLUENZA
  2. THERAFLU FLU AND SORE THROAT [Suspect]
     Indication: NASOPHARYNGITIS
     Dosage: 2 CAPFULS, Q4H
     Route: 048
     Dates: start: 20110201, end: 20110210

REACTIONS (10)
  - MYDRIASIS [None]
  - DECREASED APPETITE [None]
  - SLEEP TALKING [None]
  - OFF LABEL USE [None]
  - SOMNAMBULISM [None]
  - INSOMNIA [None]
  - AMNESIA [None]
  - WRONG TECHNIQUE IN DRUG USAGE PROCESS [None]
  - NIGHTMARE [None]
  - IRRITABILITY [None]
